FAERS Safety Report 5748052-0 (Version None)
Quarter: 2008Q2

REPORT INFORMATION
  Report Type: 
  Country: None (occurrence: None)
  Receive Date: 20080523
  Receipt Date: 20080513
  Transmission Date: 20081010
  Serious: Yes (Death, Other)
  Sender: FDA-Public Use
  Company Number: FR-ELI_LILLY_AND_COMPANY-FR200804002145

PATIENT
  Age: 59 Year
  Sex: Female
  Weight: 65 kg

DRUGS (3)
  1. CYMBALTA [Suspect]
     Indication: DEPRESSION
     Dosage: 60 MG, DAILY (1/D)
     Route: 048
     Dates: start: 20080223
  2. XANAX [Concomitant]
     Indication: DEPRESSION
     Dosage: 0.25 MG, 3/D
     Route: 048
     Dates: start: 20080219
  3. DOGMATIL [Concomitant]
     Indication: DEPRESSION
     Dosage: 50 MG, 2/D
     Route: 048
     Dates: start: 20080311

REACTIONS (5)
  - DEATH [None]
  - DRUG INTERACTION [None]
  - HEADACHE [None]
  - HEART RATE INCREASED [None]
  - VERTIGO [None]
